FAERS Safety Report 16859927 (Version 2)
Quarter: 2019Q4

REPORT INFORMATION
  Report Type: Spontaneous
  Country: US (occurrence: US)
  Receive Date: 20190927
  Receipt Date: 20191002
  Transmission Date: 20200122
  Serious: No
  Sender: FDA-Public Use
  Company Number: US-009507513-1909USA005791

PATIENT
  Age: 20 Year
  Sex: Female
  Weight: 105.22 kg

DRUGS (2)
  1. NEXPLANON [Suspect]
     Active Substance: ETONOGESTREL
     Dosage: ROD, 68 MILLIGRAM
     Route: 059
     Dates: start: 2019
  2. NEXPLANON [Suspect]
     Active Substance: ETONOGESTREL
     Indication: CONTRACEPTION
     Dosage: ROD, 68 MILLIGRAM
     Route: 059
     Dates: start: 20190827, end: 20190827

REACTIONS (5)
  - No adverse event [Unknown]
  - Device difficult to use [Recovered/Resolved]
  - Device expulsion [Recovered/Resolved]
  - Complication of device insertion [Recovered/Resolved]
  - Perforation [Recovered/Resolved]

NARRATIVE: CASE EVENT DATE: 20190827
